FAERS Safety Report 14145861 (Version 3)
Quarter: 2018Q1

REPORT INFORMATION
  Report Type: Spontaneous
  Country: US (occurrence: US)
  Receive Date: 20171031
  Receipt Date: 20180103
  Transmission Date: 20180508
  Serious: Yes (Other)
  Sender: FDA-Public Use
  Company Number: US-LUNDBECK-DKLU2039155

PATIENT
  Age: 24 Year
  Sex: Female
  Weight: 50 kg

DRUGS (2)
  1. NORTHERA [Suspect]
     Active Substance: DROXIDOPA
     Route: 065
     Dates: start: 2016
  2. NORTHERA [Suspect]
     Active Substance: DROXIDOPA
     Indication: NEURODEGENERATIVE DISORDER
     Dosage: TITRATION COMPLETE
     Route: 065
     Dates: start: 20161121

REACTIONS (5)
  - Mastication disorder [Unknown]
  - Drug dose omission [Unknown]
  - Malaise [Unknown]
  - Abdominal operation [Unknown]
  - Vomiting [Unknown]

NARRATIVE: CASE EVENT DATE: 201708
